FAERS Safety Report 21979094 (Version 1)
Quarter: 2023Q1

REPORT INFORMATION
  Report Type: Spontaneous
  Country: US (occurrence: None)
  Receive Date: 20230208
  Receipt Date: 20230208
  Transmission Date: 20230417
  Serious: No
  Sender: FDA-Public Use
  Company Number: None

PATIENT
  Age: 17 Year
  Sex: Female
  Weight: 58.51 kg

DRUGS (1)
  1. HUMIRA [Suspect]
     Active Substance: ADALIMUMAB
     Indication: Spondyloarthropathy
     Dosage: ?INJECT 40MG SUBCUTANEOUSLY EVERY 2 WEEKS IN THE ABDOMEN OR THIGHT ROTATIN INJECTION  SITES  AS
     Route: 058
     Dates: start: 202210

REACTIONS (1)
  - Hospitalisation [None]
